FAERS Safety Report 14984885 (Version 3)
Quarter: 2018Q2

REPORT INFORMATION
  Report Type: Spontaneous
  Country: CA (occurrence: CA)
  Receive Date: 20180607
  Receipt Date: 20180622
  Transmission Date: 20180711
  Serious: Yes (Hospitalization, Other)
  Sender: FDA-Public Use
  Company Number: CA-DSJP-DSU-2018-122062

PATIENT

DRUGS (1)
  1. OLMETEC [Suspect]
     Active Substance: OLMESARTAN MEDOXOMIL
     Indication: HYPERTENSION
     Dosage: UNK, SINGLE
     Route: 048

REACTIONS (9)
  - Diarrhoea [Unknown]
  - Sprue-like enteropathy [Unknown]
  - Vomiting [Unknown]
  - Dehydration [Unknown]
  - Feeding disorder [Unknown]
  - Nausea [Unknown]
  - Hypotension [Unknown]
  - Weight decreased [Unknown]
  - Influenza [Unknown]
